FAERS Safety Report 5023233-2 (Version None)
Quarter: 2006Q2

REPORT INFORMATION
  Report Type: 
  Country: None (occurrence: None)
  Receive Date: 20060612
  Receipt Date: 20060329
  Transmission Date: 20061013
  Serious: Yes (Other)
  Sender: FDA-Public Use
  Company Number: JP-BRISTOL-MYERS SQUIBB COMPANY-13329834

PATIENT
  Age: 50 Year
  Sex: Female

DRUGS (5)
  1. TAXOL [Suspect]
     Indication: BREAST CANCER
     Route: 042
     Dates: start: 20060304, end: 20060304
  2. DIPHENHYDRAMINE HCL [Concomitant]
     Route: 048
     Dates: start: 20060304, end: 20060304
  3. DEXAMETHASONE SODIUM PHOSPHATE [Concomitant]
     Route: 042
     Dates: start: 20060304, end: 20060304
  4. RANITIDINE HCL [Concomitant]
     Route: 042
     Dates: start: 20060304, end: 20060304
  5. GRANISETRON HCL [Concomitant]
     Route: 042
     Dates: start: 20060304, end: 20060304

REACTIONS (8)
  - ARTHRALGIA [None]
  - AXILLARY PAIN [None]
  - CONJUNCTIVAL HYPERAEMIA [None]
  - DYSGEUSIA [None]
  - EYE PAIN [None]
  - HOT FLUSH [None]
  - MYALGIA [None]
  - PALPITATIONS [None]
